FAERS Safety Report 4678372-2 (Version None)
Quarter: 2005Q2

REPORT INFORMATION
  Report Type: 
  Country: None (occurrence: None)
  Receive Date: 20050531
  Receipt Date: 20050531
  Transmission Date: 20051028
  Serious: Yes (Other)
  Sender: FDA-Public Use
  Company Number: None

PATIENT
  Age: 7 Year
  Sex: Female
  Weight: 28.5766 kg

DRUGS (1)
  1. PROTOPIC [Suspect]
     Indication: VITILIGO
     Dosage: AS MUCH AS NEEDED TOPICAL
     Route: 061
     Dates: start: 20040801, end: 20050301

REACTIONS (1)
  - FIBROUS HISTIOCYTOMA [None]
